FAERS Safety Report 20630605 (Version 1)
Quarter: 2022Q1

REPORT INFORMATION
  Report Type: Other
  Country: JP (occurrence: JP)
  Receive Date: 20220324
  Receipt Date: 20220324
  Transmission Date: 20220423
  Serious: Yes (Other)
  Sender: FDA-Public Use
  Company Number: JP-CHUGAI-2021020134

PATIENT
  Age: 76 Year
  Sex: Male
  Weight: 45 kg

DRUGS (2)
  1. ENTRECTINIB [Suspect]
     Active Substance: ENTRECTINIB
     Indication: Non-small cell lung cancer
     Dosage: 600 MILLIGRAM, QD
     Route: 048
     Dates: start: 20210511, end: 20210621
  2. ENTRECTINIB [Suspect]
     Active Substance: ENTRECTINIB
     Dosage: 400 MILLIGRAM, QD
     Route: 048
     Dates: start: 20210706, end: 20210726

REACTIONS (2)
  - Renal impairment [Not Recovered/Not Resolved]
  - Diarrhoea [Unknown]

NARRATIVE: CASE EVENT DATE: 20210621
